FAERS Safety Report 18460218 (Version 2)
Quarter: 2020Q4

REPORT INFORMATION
  Report Type: Spontaneous
  Country: US (occurrence: US)
  Receive Date: 20201104
  Receipt Date: 20201113
  Transmission Date: 20210114
  Serious: Yes (Other)
  Sender: FDA-Public Use
  Company Number: US-SA-2020SA303522

PATIENT

DRUGS (3)
  1. CABLIVI [Suspect]
     Active Substance: CAPLACIZUMAB-YHDP
     Indication: THROMBOTIC MICROANGIOPATHY
     Dosage: 11 MG, QD
     Route: 058
     Dates: start: 20201013
  2. RITUXAN [Suspect]
     Active Substance: RITUXIMAB
     Route: 065
  3. MYCOPHENOLATE MOFETIL. [Suspect]
     Active Substance: MYCOPHENOLATE MOFETIL

REACTIONS (11)
  - Product dose omission issue [Unknown]
  - Insomnia [Unknown]
  - Illness [Unknown]
  - Haematocrit decreased [Unknown]
  - Malaise [Unknown]
  - Cold sweat [Unknown]
  - Menstrual disorder [Unknown]
  - Drug hypersensitivity [Unknown]
  - Haemorrhage [Unknown]
  - Haemoglobin decreased [Unknown]
  - Dyspnoea [Unknown]
